FAERS Safety Report 5336581-3 (Version None)
Quarter: 2007Q2

REPORT INFORMATION
  Report Type: 
  Country: None (occurrence: None)
  Receive Date: 20070529
  Receipt Date: 20070516
  Transmission Date: 20071010
  Serious: Yes (Hospitalization, Disabling)
  Sender: FDA-Public Use
  Company Number: CA-JNJFOC-20070504854

PATIENT
  Sex: Female

DRUGS (4)
  1. TYLENOL W/ CODEINE NO. 1 [Suspect]
     Indication: ANALGESIC EFFECT
     Route: 048
  2. TYLENOL W/ CODEINE NO. 1 [Suspect]
     Indication: GAIT DISTURBANCE
     Route: 048
  3. TYLENOL W/ CODEINE NO. 1 [Suspect]
     Indication: JOINT SWELLING
     Route: 048
  4. TYLENOL W/ CODEINE NO. 1 [Suspect]
     Route: 048

REACTIONS (2)
  - DRUG WITHDRAWAL SYNDROME [None]
  - GAIT DISTURBANCE [None]
